FAERS Safety Report 4307296-5 (Version None)
Quarter: 2004Q1

REPORT INFORMATION
  Report Type: 
  Country: None (occurrence: None)
  Receive Date: 20040226
  Receipt Date: 20040216
  Transmission Date: 20041129
  Serious: Yes (Hospitalization)
  Sender: FDA-Public Use
  Company Number: 04P-087-0249010-00

PATIENT
  Age: 70 Year
  Sex: Female

DRUGS (4)
  1. MAVIK [Suspect]
     Indication: HYPERTENSION
     Dosage: 1 MG, 1 IN 1 D, ORAL
     Route: 048
     Dates: start: 20031209, end: 20040110
  2. NIFEDIPINE [Suspect]
     Indication: HYPERTENSION
     Dosage: 20 MG, 1 IN 1 D, ORAL
     Route: 048
     Dates: start: 20031209, end: 20040110
  3. NIZATIDINE [Suspect]
     Indication: GASTRIC ULCER
     Dosage: 150 MG, 1 IN 1 D, ORAL
     Route: 048
     Dates: start: 20031209, end: 20040110
  4. CHLORPROMAZINE HCL [Suspect]
     Dosage: 37.5 MG, 1 IN 1 D, ORAL
     Route: 048
     Dates: start: 20031209, end: 20040110

REACTIONS (3)
  - JAUNDICE [None]
  - LIVER DISORDER [None]
  - PYREXIA [None]
